FAERS Safety Report 15473618 (Version 1)
Quarter: 2018Q4

REPORT INFORMATION
  Report Type: Report from Study
  Country: US (occurrence: US)
  Receive Date: 20181008
  Receipt Date: 20181008
  Transmission Date: 20190205
  Serious: Yes (Other)
  Sender: FDA-Public Use
  Company Number: US-MYLANLABS-2018M1072055

PATIENT
  Sex: Male

DRUGS (2)
  1. SALINE                             /00075401/ [Concomitant]
     Active Substance: SODIUM CHLORIDE
     Indication: VEHICLE SOLUTION USE
     Route: 041
  2. KETAMINE [Suspect]
     Active Substance: KETAMINE
     Indication: DEPRESSION
     Dosage: 0.5 MG/KG, MIXED IN 500ML OF 0.9% NORMAL SALINE
     Route: 041

REACTIONS (2)
  - Off label use [Recovered/Resolved]
  - Blood pressure systolic increased [Recovered/Resolved]
